FAERS Safety Report 7814241-4 (Version None)
Quarter: 2011Q4

REPORT INFORMATION
  Report Type: 
  Country: None (occurrence: None)
  Receive Date: 20111014
  Receipt Date: 20111011
  Transmission Date: 20120403
  Serious: Yes (Life-Threatening, Hospitalization, Other)
  Sender: FDA-Public Use
  Company Number: US-JNJFOC-20111005055

PATIENT
  Age: 23 Year
  Sex: Male

DRUGS (2)
  1. ANTICONVULSANTS, NOS [Suspect]
     Indication: PRODUCT USED FOR UNKNOWN INDICATION
     Route: 048
  2. ULTRAM [Suspect]
     Indication: PRODUCT USED FOR UNKNOWN INDICATION
     Dosage: 35-50 MG
     Route: 048

REACTIONS (10)
  - MULTIPLE DRUG OVERDOSE [None]
  - STRIDOR [None]
  - HEART RATE INCREASED [None]
  - CYANOSIS [None]
  - TREMOR [None]
  - LOSS OF CONSCIOUSNESS [None]
  - CONVULSION [None]
  - MYDRIASIS [None]
  - CLONUS [None]
  - TOXICITY TO VARIOUS AGENTS [None]
